FAERS Safety Report 17901273 (Version 2)
Quarter: 2020Q4

REPORT INFORMATION
  Report Type: Report from Study
  Country: US (occurrence: US)
  Receive Date: 20200616
  Receipt Date: 20201103
  Transmission Date: 20210113
  Serious: Yes (Death, Life-Threatening, Hospitalization, Other)
  Sender: FDA-Public Use
  Company Number: NVSC2020US165843

PATIENT
  Age: 14 Year
  Sex: Male
  Weight: 36.9 kg

DRUGS (3)
  1. KYMRIAH [Suspect]
     Active Substance: TISAGENLECLEUCEL
     Indication: ACUTE LYMPHOCYTIC LEUKAEMIA
     Dosage: UNK (2.8 X 10 RAISE TO 6 CAR+VISIBLE T-CELLS/KG IN 13 ML)
     Route: 042
     Dates: start: 20200512
  2. CYCLOPHOSPHAMIDE. [Concomitant]
     Active Substance: CYCLOPHOSPHAMIDE
     Indication: CHEMOTHERAPY
     Route: 065
  3. FLUDARABINE [Concomitant]
     Active Substance: FLUDARABINE PHOSPHATE
     Indication: CHEMOTHERAPY
     Route: 065

REACTIONS (17)
  - Confusional state [Unknown]
  - Haematocrit decreased [Unknown]
  - Cardiotoxicity [Unknown]
  - Cardio-respiratory arrest [Unknown]
  - Haemoglobin decreased [Unknown]
  - Hypoxia [Fatal]
  - Treatment failure [Unknown]
  - Dyspnoea [Unknown]
  - Platelet count decreased [Unknown]
  - Lymphocyte count decreased [Unknown]
  - C-reactive protein increased [Unknown]
  - Vision blurred [Unknown]
  - Cytokine release syndrome [Fatal]
  - Pyrexia [Fatal]
  - Serum ferritin increased [Unknown]
  - Neurotoxicity [Not Recovered/Not Resolved]
  - Hallucination [Unknown]

NARRATIVE: CASE EVENT DATE: 20200513
